FAERS Safety Report 9481626 (Version 2)
Quarter: 2013Q3

REPORT INFORMATION
  Report Type: Spontaneous
  Country: US (occurrence: US)
  Receive Date: 20130828
  Receipt Date: 20130828
  Transmission Date: 20140515
  Serious: Yes (Hospitalization)
  Sender: FDA-Public Use
  Company Number: US-AMGEN-KDL173086

PATIENT
  Age: 29 Year
  Sex: Female

DRUGS (8)
  1. ENBREL [Suspect]
     Indication: PSORIATIC ARTHROPATHY
     Dosage: 50 MG, QWK
     Route: 058
     Dates: start: 20050801
  2. ETODOLAC [Concomitant]
  3. ETHINYL ESTRADIOL/NORGESTIMATE [Concomitant]
  4. WARFARIN SODIUM [Concomitant]
     Dosage: 5 MG, QD
  5. CELECOXIB [Concomitant]
     Dosage: 200 MG, QD
  6. LISINOPRIL [Concomitant]
     Dosage: 30 MG, QD
  7. TRAMADOL HYDROCHLORIDE [Concomitant]
     Dosage: 50 MG, PRN
  8. TOPROL XL [Concomitant]
     Dosage: 100 MG, QD

REACTIONS (6)
  - Pulmonary embolism [Recovered/Resolved]
  - Pneumonia [Recovered/Resolved]
  - Atelectasis [Unknown]
  - Myalgia [Not Recovered/Not Resolved]
  - Upper respiratory tract infection [Unknown]
  - Injection site pain [Recovered/Resolved]
